FAERS Safety Report 19508450 (Version 4)
Quarter: 2021Q3

REPORT INFORMATION
  Report Type: Report from Study
  Country: None (occurrence: FR)
  Receive Date: 20210708
  Receipt Date: 20210924
  Transmission Date: 20211014
  Serious: Yes (Hospitalization, Disabling)
  Sender: FDA-Public Use
  Company Number: FR-ABBVIE-21K-056-3963974-00

PATIENT
  Age: 61 Year
  Sex: Male

DRUGS (3)
  1. CLOZAPINE. [Concomitant]
     Active Substance: CLOZAPINE
     Indication: PRODUCT USED FOR UNKNOWN INDICATION
  2. DUODOPA [Suspect]
     Active Substance: CARBIDOPA\LEVODOPA
     Indication: PARKINSON^S DISEASE
     Route: 050
     Dates: start: 202009
  3. DUODOPA [Suspect]
     Active Substance: CARBIDOPA\LEVODOPA

REACTIONS (24)
  - Gait inability [Not Recovered/Not Resolved]
  - Depression [Unknown]
  - Fluid intake reduced [Unknown]
  - Device difficult to use [Recovered/Resolved]
  - Weight increased [Unknown]
  - Stoma site discharge [Unknown]
  - Stoma site inflammation [Unknown]
  - Bladder catheterisation [Recovered/Resolved]
  - Nausea [Unknown]
  - Dysphagia [Recovering/Resolving]
  - Psychiatric symptom [Unknown]
  - General physical condition abnormal [Unknown]
  - Wheelchair user [Unknown]
  - Drug ineffective [Unknown]
  - Asthenia [Not Recovered/Not Resolved]
  - Fear of falling [Unknown]
  - Pleurisy [Not Recovered/Not Resolved]
  - Fatigue [Unknown]
  - Gait disturbance [Unknown]
  - Hyperhidrosis [Unknown]
  - Decreased appetite [Unknown]
  - Speech disorder [Unknown]
  - Balance disorder [Unknown]
  - Parosmia [Unknown]
